FAERS Safety Report 25069734 (Version 1)
Quarter: 2025Q1

REPORT INFORMATION
  Report Type: Spontaneous
  Country: BY (occurrence: BY)
  Receive Date: 20250312
  Receipt Date: 20250312
  Transmission Date: 20250408
  Serious: Yes (Death)
  Sender: JOHNSON AND JOHNSON
  Company Number: BY-JNJFOC-20250322398

PATIENT
  Sex: Male

DRUGS (6)
  1. SIRTURO [Suspect]
     Active Substance: BEDAQUILINE FUMARATE
     Indication: Product used for unknown indication
     Dosage: FOR 2 WEEKS
     Route: 065
     Dates: start: 20230822
  2. SIRTURO [Suspect]
     Active Substance: BEDAQUILINE FUMARATE
     Route: 048
  3. PRETOMANID [Suspect]
     Active Substance: PRETOMANID
     Dates: start: 20230822
  4. LINEZOLID [Suspect]
     Active Substance: LINEZOLID
     Dosage: FOR 112 DOSES
     Route: 048
     Dates: start: 20230822
  5. LINEZOLID [Suspect]
     Active Substance: LINEZOLID
  6. CLOFAZIMINE [Suspect]
     Active Substance: CLOFAZIMINE

REACTIONS (1)
  - Pneumonia klebsiella [Fatal]

NARRATIVE: CASE EVENT DATE: 20240617
